FAERS Safety Report 8121775-4 (Version None)
Quarter: 2011Q4

REPORT INFORMATION
  Report Type: 
  Country: None (occurrence: None)
  Receive Date: 20111227
  Receipt Date: 20110913
  Transmission Date: 20120403
  Serious: No
  Sender: FDA-Public Use
  Company Number: PHEH2011US04121

PATIENT
  Age: 22 Year
  Sex: Female
  Weight: 102.5 kg

DRUGS (1)
  1. GILENYA [Suspect]
     Indication: MULTIPLE SCLEROSIS
     Dosage: 0.5 MG, EVERYDAY, ORAL
     Route: 048
     Dates: start: 20110401, end: 20110901

REACTIONS (7)
  - VULVOVAGINAL MYCOTIC INFECTION [None]
  - WHITE BLOOD CELL COUNT DECREASED [None]
  - COUGH [None]
  - SENSATION OF HEAVINESS [None]
  - OROPHARYNGEAL PAIN [None]
  - SINUSITIS [None]
  - RHINORRHOEA [None]
